FAERS Safety Report 11521653 (Version 1)
Quarter: 2015Q3

REPORT INFORMATION
  Report Type: Spontaneous
  Country: US (occurrence: US)
  Receive Date: 20150918
  Receipt Date: 20150918
  Transmission Date: 20151125
  Serious: No
  Sender: FDA-Public Use
  Company Number: US-ROCHE-707385

PATIENT
  Age: 56 Year
  Sex: Female

DRUGS (2)
  1. RIBAVIRIN. [Suspect]
     Active Substance: RIBAVIRIN
     Indication: HEPATITIS C
     Dosage: DIVIDED DOSES, WEEK 9 OF TREATMENT
     Route: 065
  2. PEGASYS [Suspect]
     Active Substance: PEGINTERFERON ALFA-2A
     Indication: HEPATITIS C
     Dosage: PRE-FILLED SYRINGE, WEEK 9 OF TREATMENT
     Route: 065

REACTIONS (9)
  - Dyspnoea [Recovering/Resolving]
  - Eructation [Recovering/Resolving]
  - Oropharyngeal pain [Unknown]
  - Flatulence [Recovering/Resolving]
  - Insomnia [Recovering/Resolving]
  - Vision blurred [Not Recovered/Not Resolved]
  - Dyspepsia [Recovering/Resolving]
  - Injection site erythema [Not Recovered/Not Resolved]
  - Rash papular [Recovering/Resolving]

NARRATIVE: CASE EVENT DATE: 201005
